FAERS Safety Report 4600020-8 (Version None)
Quarter: 2005Q1

REPORT INFORMATION
  Report Type: 
  Country: None (occurrence: None)
  Receive Date: 20050303
  Receipt Date: 20050214
  Transmission Date: 20050727
  Serious: No
  Sender: FDA-Public Use
  Company Number: 10311

PATIENT
  Age: 67 Year
  Sex: Male

DRUGS (7)
  1. PAMIDRONATE DISODIUM [Suspect]
     Indication: MULTIPLE MYELOMA
  2. ZOLEDRONIC ACID [Suspect]
     Indication: MULTIPLE MYELOMA
  3. FLUOROURACIL [Concomitant]
  4. ADRIAMYCIN PFS [Concomitant]
  5. MEGESTROL [Concomitant]
  6. DEXAMETHASONE [Concomitant]
  7. THALIDOMIDE [Concomitant]

REACTIONS (3)
  - JAW DISORDER [None]
  - OSTEOMYELITIS CHRONIC [None]
  - OSTEONECROSIS [None]
